FAERS Safety Report 21758697 (Version 1)
Quarter: 2022Q4

REPORT INFORMATION
  Report Type: Report from Study
  Country: BR (occurrence: BR)
  Receive Date: 20221221
  Receipt Date: 20221221
  Transmission Date: 20230112
  Serious: Yes (Hospitalization, Disabling)
  Sender: FDA-Public Use
  Company Number: BR-ABBVIE-4240952

PATIENT
  Sex: Male
  Weight: 65 kg

DRUGS (6)
  1. HUMIRA [Suspect]
     Active Substance: ADALIMUMAB
     Indication: Ankylosing spondylitis
     Route: 058
     Dates: start: 202205
  2. HUMIRA [Suspect]
     Active Substance: ADALIMUMAB
     Route: 058
     Dates: start: 20101001, end: 202203
  3. TRAMADOL [Concomitant]
     Active Substance: TRAMADOL
     Indication: Sacral pain
  4. DEXAMETHASONE [Concomitant]
     Active Substance: DEXAMETHASONE
     Indication: Sacral pain
  5. DIPYRONE [Concomitant]
     Active Substance: DIPYRONE
     Indication: Sacral pain
  6. METHOTREXATE [Concomitant]
     Active Substance: METHOTREXATE
     Indication: Sacral pain

REACTIONS (10)
  - Abdominal pain [Recovered/Resolved]
  - Gait inability [Recovered/Resolved]
  - Mobility decreased [Recovered/Resolved]
  - Diverticulitis [Recovered/Resolved]
  - Gastrointestinal inflammation [Recovered/Resolved]
  - Spinal disorder [Recovered/Resolved]
  - Iridocyclitis [Recovering/Resolving]
  - Body height decreased [Recovered/Resolved]
  - Sacral pain [Recovered/Resolved]
  - COVID-19 [Recovered/Resolved]

NARRATIVE: CASE EVENT DATE: 20220101
